FAERS Safety Report 10467048 (Version 1)
Quarter: 2014Q3

REPORT INFORMATION
  Report Type: Spontaneous
  Country: US (occurrence: US)
  Receive Date: 20140922
  Receipt Date: 20140922
  Transmission Date: 20150326
  Serious: Yes (Death)
  Sender: FDA-Public Use
  Company Number: US-INCYTE CORPORATION-2014IN002664

PATIENT
  Age: 81 Year
  Sex: Male

DRUGS (11)
  1. COREG [Concomitant]
     Active Substance: CARVEDILOL
  2. KEFLEX [Concomitant]
     Active Substance: CEPHALEXIN
  3. PROCRIT [Concomitant]
     Active Substance: ERYTHROPOIETIN
  4. VANCOMYCIN                         /00314402/ [Concomitant]
     Active Substance: VANCOMYCIN
  5. JAKAFI [Suspect]
     Active Substance: RUXOLITINIB
     Indication: MYELOFIBROSIS
     Dosage: 10 MG, BID
     Route: 048
     Dates: start: 20130907
  6. ALLOPURINOL. [Concomitant]
     Active Substance: ALLOPURINOL
  7. FOLIC ACID. [Concomitant]
     Active Substance: FOLIC ACID
  8. TRAMADOL [Concomitant]
     Active Substance: TRAMADOL
  9. FINASTERIDE. [Concomitant]
     Active Substance: FINASTERIDE
  10. COLCHICINE. [Concomitant]
     Active Substance: COLCHICINE
  11. LEVOTHYROXINE [Concomitant]
     Active Substance: LEVOTHYROXINE

REACTIONS (1)
  - Death [Fatal]

NARRATIVE: CASE EVENT DATE: 20140827
